FAERS Safety Report 8189736-7 (Version None)
Quarter: 2012Q1

REPORT INFORMATION
  Report Type: 
  Country: None (occurrence: None)
  Receive Date: 20120307
  Receipt Date: 20120302
  Transmission Date: 20120608
  Serious: Yes (Other)
  Sender: FDA-Public Use
  Company Number: US-PFIZER INC-2012056922

PATIENT
  Sex: Female
  Weight: 71.655 kg

DRUGS (3)
  1. EFFEXOR XR [Suspect]
     Indication: DEPRESSION
  2. LEVOXYL [Concomitant]
     Dosage: UNK
  3. EFFEXOR XR [Suspect]
     Indication: PANIC ATTACK
     Dosage: 150 MG, 1X/DAY
     Route: 048
     Dates: end: 20120201

REACTIONS (3)
  - PANIC ATTACK [None]
  - DEPRESSION [None]
  - HYPERTENSION [None]
